FAERS Safety Report 7331913-9 (Version None)
Quarter: 2011Q1

REPORT INFORMATION
  Report Type: 
  Country: None (occurrence: None)
  Receive Date: 20110304
  Receipt Date: 20100709
  Transmission Date: 20110831
  Serious: Yes (Other)
  Sender: FDA-Public Use
  Company Number: US-PFIZER INC-2009255714

PATIENT
  Sex: Male

DRUGS (3)
  1. DILANTIN [Suspect]
     Indication: CONVULSION
     Dosage: 200 MG, 2X/DAY
     Route: 048
     Dates: start: 20070428, end: 20070528
  2. DILANTIN [Suspect]
     Dosage: 200 MG, 2X/DAY
     Route: 048
     Dates: start: 20071111, end: 20071204
  3. DILANTIN [Suspect]
     Dosage: UNK
     Route: 048
     Dates: start: 20070507, end: 20070606

REACTIONS (1)
  - STEVENS-JOHNSON SYNDROME [None]
